FAERS Safety Report 10164430 (Version 2)
Quarter: 2014Q2

REPORT INFORMATION
  Report Type: Spontaneous
  Country: US (occurrence: US)
  Receive Date: 20140510
  Receipt Date: 20140510
  Transmission Date: 20141212
  Serious: No
  Sender: FDA-Public Use
  Company Number: US200812003772

PATIENT
  Age: 56 Year
  Sex: Female

DRUGS (5)
  1. BYETTA PEN DISPOSABLE [Suspect]
     Indication: TYPE 2 DIABETES MELLITUS
     Dosage: EXP DATE:MAR2015
     Route: 058
     Dates: start: 200712
  2. EXENATIDE 5MCG PEN, DISPOSABLE DEVICE [Concomitant]
  3. EXENATIDE 5MCG PEN, DISPOSABLE DEVICE [Concomitant]
  4. METFORMIN [Concomitant]
  5. ACTOS [Concomitant]

REACTIONS (4)
  - Glycosylated haemoglobin increased [Not Recovered/Not Resolved]
  - Medication error [Unknown]
  - Incorrect product storage [Unknown]
  - Injection site extravasation [Unknown]
